FAERS Safety Report 7929050-5 (Version None)
Quarter: 2011Q4

REPORT INFORMATION
  Report Type: 
  Country: None (occurrence: None)
  Receive Date: 20111118
  Receipt Date: 20111108
  Transmission Date: 20120403
  Serious: Yes (Other)
  Sender: FDA-Public Use
  Company Number: JP-ASTRAZENECA-2011SE67147

PATIENT
  Age: 43 Year
  Sex: Male

DRUGS (17)
  1. PIPERACILLIN SODIUM [Concomitant]
  2. LANTUS [Concomitant]
  3. VOLTAREN SUPPO [Concomitant]
  4. LENDORMIN [Concomitant]
  5. MEROPENEM [Suspect]
     Indication: CELLULITIS
     Route: 042
     Dates: start: 20111024, end: 20111028
  6. HUMULIN R [Concomitant]
  7. MEROPENEM [Suspect]
     Route: 042
     Dates: start: 20111101
  8. LEVOFLOXACIN [Concomitant]
  9. FLOMOX [Concomitant]
     Route: 048
  10. AMOBAN [Concomitant]
  11. PLETAL [Concomitant]
  12. CIPROFLOXACIN HCL [Concomitant]
  13. MAXIPIME [Concomitant]
  14. SELBEX [Concomitant]
  15. MAGNESIUM SULFATE [Concomitant]
  16. NOVORAPID [Concomitant]
  17. MEROPENEM [Suspect]
     Route: 042
     Dates: start: 20111029, end: 20111031

REACTIONS (1)
  - HYPERKALAEMIA [None]
